FAERS Safety Report 11922808 (Version 2)
Quarter: 2016Q1

REPORT INFORMATION
  Report Type: Spontaneous
  Country: RO (occurrence: RO)
  Receive Date: 20160116
  Receipt Date: 20160211
  Transmission Date: 20160526
  Serious: Yes (Life-Threatening, Hospitalization, Disabling)
  Sender: FDA-Public Use
  Company Number: RO-ABBVIE-16K-135-1538719-00

PATIENT
  Age: 59 Year
  Sex: Male
  Weight: 85 kg

DRUGS (1)
  1. HUMIRA [Suspect]
     Active Substance: ADALIMUMAB
     Indication: PSORIATIC ARTHROPATHY
     Route: 058
     Dates: start: 201111

REACTIONS (4)
  - Pyelonephritis chronic [Recovered/Resolved with Sequelae]
  - Nephrolithiasis [Recovered/Resolved with Sequelae]
  - Acute kidney injury [Recovered/Resolved with Sequelae]
  - Blood creatinine increased [Unknown]

NARRATIVE: CASE EVENT DATE: 201407
